FAERS Safety Report 19989989 (Version 1)
Quarter: 2021Q4

REPORT INFORMATION
  Report Type: Spontaneous
  Country: US (occurrence: US)
  Receive Date: 20211022
  Receipt Date: 20211022
  Transmission Date: 20220303
  Serious: Yes (Other)
  Sender: FDA-Public Use
  Company Number: None

PATIENT
  Age: 38 Year
  Sex: Female
  Weight: 69 kg

DRUGS (1)
  1. REGEN-COV [Suspect]
     Active Substance: CASIRIVIMAB\IMDEVIMAB
     Indication: COVID-19
     Dosage: ?          OTHER FREQUENCY:ONCE;
     Route: 042
     Dates: start: 20211022, end: 20211022

REACTIONS (7)
  - Infusion related reaction [None]
  - Dyspnoea [None]
  - Rash erythematous [None]
  - Nausea [None]
  - Dyspnoea [None]
  - Blood pressure increased [None]
  - Drug hypersensitivity [None]

NARRATIVE: CASE EVENT DATE: 20211022
